FAERS Safety Report 19423857 (Version 1)
Quarter: 2021Q2

REPORT INFORMATION
  Report Type: Spontaneous
  Country: CA (occurrence: CA)
  Receive Date: 20210616
  Receipt Date: 20210616
  Transmission Date: 20210717
  Serious: Yes (Other)
  Sender: FDA-Public Use
  Company Number: CA-MYLANLABS-2021M1034222

PATIENT
  Age: 27 Year
  Sex: Male
  Weight: 86 kg

DRUGS (1)
  1. MYLAN?DIVALPROEX [Suspect]
     Active Substance: DIVALPROEX SODIUM
     Indication: EPILEPSY
     Dosage: 1 DOSAGE FORM

REACTIONS (3)
  - Loss of therapeutic response [Recovered/Resolved]
  - Epileptic aura [Recovered/Resolved]
  - Seizure [Recovered/Resolved]
